FAERS Safety Report 12976027 (Version 1)
Quarter: 2016Q4

REPORT INFORMATION
  Report Type: Spontaneous
  Country: GB (occurrence: GB)
  Receive Date: 20161126
  Receipt Date: 20161126
  Transmission Date: 20170207
  Serious: Yes (Other)
  Sender: FDA-Public Use
  Company Number: GB-SCIEGEN PHARMACEUTICALS INC-2016SCILIT00576

PATIENT
  Age: 52 Year
  Sex: Male
  Weight: 139 kg

DRUGS (6)
  1. METFORMIN HYDROCHLORIDE TABLETS, USP [Suspect]
     Active Substance: METFORMIN HYDROCHLORIDE
     Indication: PRODUCT USED FOR UNKNOWN INDICATION
     Dosage: UNK
     Route: 065
  2. METFORMIN HYDROCHLORIDE TABLETS, USP [Suspect]
     Active Substance: METFORMIN HYDROCHLORIDE
     Dosage: UNK
  3. LIRAGLUTIDE [Suspect]
     Active Substance: LIRAGLUTIDE
     Indication: PRODUCT USED FOR UNKNOWN INDICATION
     Dosage: 1.8 MG, QD
     Route: 058
  4. INSULIN [Suspect]
     Active Substance: INSULIN NOS
     Dosage: 30 IU, UNK
     Route: 065
  5. DAPAGLIFLOZIN [Suspect]
     Active Substance: DAPAGLIFLOZIN
     Indication: PRODUCT USED FOR UNKNOWN INDICATION
     Dosage: 10 MG ONCE DAILY
     Route: 058
  6. INSULIN [Suspect]
     Active Substance: INSULIN NOS
     Indication: DIABETES MELLITUS
     Dosage: 50 IU, BID
     Route: 058

REACTIONS (9)
  - Gastrointestinal disorder [Unknown]
  - Retinopathy proliferative [Unknown]
  - Insulin resistance [Unknown]
  - Sleep apnoea syndrome [Recovered/Resolved]
  - Glycosylated haemoglobin increased [Recovering/Resolving]
  - Diabetic neuropathy [Unknown]
  - Hypertension [Recovering/Resolving]
  - Acrochordon [Unknown]
  - Weight decreased [Unknown]
